FAERS Safety Report 4992226-3 (Version None)
Quarter: 2006Q2

REPORT INFORMATION
  Report Type: 
  Country: None (occurrence: None)
  Receive Date: 20060502
  Receipt Date: 20060417
  Transmission Date: 20061013
  Serious: Yes (Hospitalization)
  Sender: FDA-Public Use
  Company Number: 2006S1003366

PATIENT
  Age: 53 Year
  Sex: Male

DRUGS (2)
  1. HYDROCHLOROTHIAZIDE CAPSULES [Suspect]
     Dosage: ORAL
     Route: 048
  2. FLUOXETINE (BARR) (20 MG) [Suspect]
     Indication: DEPRESSION
     Dosage: ORAL
     Route: 048
     Dates: start: 20060220

REACTIONS (4)
  - BLOOD SODIUM DECREASED [None]
  - COLD SWEAT [None]
  - DYSPNOEA [None]
  - PARAESTHESIA [None]
